FAERS Safety Report 5535494-1 (Version None)
Quarter: 2007Q4

REPORT INFORMATION
  Report Type: 
  Country: None (occurrence: None)
  Receive Date: 20071206
  Receipt Date: 20071128
  Transmission Date: 20080405
  Serious: Yes (Other)
  Sender: FDA-Public Use
  Company Number: ES-ROCHE-532136

PATIENT
  Age: 62 Year
  Sex: Female
  Weight: 65 kg

DRUGS (1)
  1. BONIVA [Suspect]
     Indication: OSTEOPOROSIS
     Dosage: FORM: FILM COATED TABLETS
     Route: 048
     Dates: start: 20071001, end: 20071101

REACTIONS (3)
  - BURN OESOPHAGEAL [None]
  - DYSPNOEA [None]
  - URTICARIA [None]
